FAERS Safety Report 11168207 (Version 1)
Quarter: 2015Q2

REPORT INFORMATION
  Report Type: Spontaneous
  Country: US (occurrence: None)
  Receive Date: 20150604
  Receipt Date: 20150604
  Transmission Date: 20150821
  Serious: Yes (Other)
  Sender: FDA-Public Use
  Company Number: None

PATIENT

DRUGS (2)
  1. HYDROXYCHLOROQUINE MYLAN [Suspect]
     Active Substance: HYDROXYCHLOROQUINE
     Route: 048
  2. HYDROXYCHLOROQUINE 200MG RANBAXY [Suspect]
     Active Substance: HYDROXYCHLOROQUINE
     Indication: SYSTEMIC LUPUS ERYTHEMATOSUS
     Route: 048
     Dates: start: 2010, end: 2015

REACTIONS (3)
  - Vomiting [None]
  - Diarrhoea [None]
  - Nausea [None]
